FAERS Safety Report 7740531-X (Version None)
Quarter: 2011Q3

REPORT INFORMATION
  Report Type: 
  Country: None (occurrence: None)
  Receive Date: 20110909
  Receipt Date: 20110907
  Transmission Date: 20111222
  Serious: Yes (Other)
  Sender: FDA-Public Use
  Company Number: NL-PFIZER INC-2011210155

PATIENT

DRUGS (3)
  1. SEROQUEL [Suspect]
     Dosage: 100MG, DAILY
     Route: 064
  2. ZOLOFT [Suspect]
     Dosage: 100MG, DAILY
     Route: 064
  3. XYZAL [Suspect]
     Dosage: 5MG, DAILY
     Route: 064

REACTIONS (2)
  - MATERNAL EXPOSURE DURING PREGNANCY [None]
  - DEVELOPMENTAL DELAY [None]
